FAERS Safety Report 9200290 (Version 2)
Quarter: 2014Q1

REPORT INFORMATION
  Report Type: Spontaneous
  Country: US (occurrence: US)
  Receive Date: 20130329
  Receipt Date: 20140213
  Transmission Date: 20141002
  Serious: No
  Sender: FDA-Public Use
  Company Number: US-009507513-1303USA014036

PATIENT
  Sex: Male

DRUGS (2)
  1. PROSCAR [Suspect]
     Indication: ALOPECIA
     Dosage: 5 MG, UNK
     Route: 048
     Dates: start: 20030920
  2. FINASTERIDE [Suspect]
     Indication: ALOPECIA
     Dosage: 5 MG, UNK
     Dates: start: 20061102, end: 20071009

REACTIONS (6)
  - Cognitive disorder [Not Recovered/Not Resolved]
  - Drug administration error [Recovered/Resolved]
  - Shoulder operation [Unknown]
  - Sexual dysfunction [Not Recovered/Not Resolved]
  - Erectile dysfunction [Unknown]
  - Loss of libido [Unknown]
